FAERS Safety Report 18702235 (Version 3)
Quarter: 2021Q1

REPORT INFORMATION
  Report Type: Spontaneous
  Country: CH (occurrence: CH)
  Receive Date: 20210105
  Receipt Date: 20210114
  Transmission Date: 20210419
  Serious: Yes (Hospitalization, Other)
  Sender: FDA-Public Use
  Company Number: CH-OTSUKA-2020_032828

PATIENT
  Age: 69 Year
  Sex: Female
  Weight: 95.8 kg

DRUGS (6)
  1. TRANXILIUM [Concomitant]
     Active Substance: CLORAZEPATE DIPOTASSIUM
     Indication: ANXIETY
     Dosage: 10 MG, BID (2X10 MG/D)
     Route: 048
  2. ABILIFY [Suspect]
     Active Substance: ARIPIPRAZOLE
     Indication: PERSONALITY DISORDER
     Dosage: 25 MG, QD
     Route: 048
     Dates: start: 2015, end: 20200921
  3. ABILIFY [Suspect]
     Active Substance: ARIPIPRAZOLE
     Indication: SCHIZOPHRENIA
  4. ABILIFY [Suspect]
     Active Substance: ARIPIPRAZOLE
     Indication: BIPOLAR DISORDER
  5. DISTRANEURIN [Concomitant]
     Active Substance: CLOMETHIAZOLE
     Indication: SLEEP DISORDER
     Dosage: UNK (LONG TERM), IN THE EVENING
     Route: 048
  6. MIRTAZAPINE. [Concomitant]
     Active Substance: MIRTAZAPINE
     Indication: MENTAL DISORDER
     Dosage: 7.5 MG, QD IN THE EVENING
     Route: 048

REACTIONS (6)
  - Pulmonary embolism [Unknown]
  - Product use in unapproved indication [Unknown]
  - Pulmonary sepsis [Unknown]
  - Ketoacidosis [Recovered/Resolved]
  - Altered state of consciousness [Recovered/Resolved]
  - Urinary tract infection [Unknown]

NARRATIVE: CASE EVENT DATE: 2015
